FAERS Safety Report 23441253 (Version 1)
Quarter: 2024Q1

REPORT INFORMATION
  Report Type: Spontaneous
  Country: US (occurrence: US)
  Receive Date: 20240125
  Receipt Date: 20240125
  Transmission Date: 20240409
  Serious: Yes (Hospitalization, Other)
  Sender: FDA-Public Use
  Company Number: US-BRISTOL-MYERS SQUIBB COMPANY-2024-011300

PATIENT
  Age: 61 Year
  Sex: Female

DRUGS (1)
  1. POMALYST [Suspect]
     Active Substance: POMALIDOMIDE
     Indication: Plasma cell myeloma
     Dosage: 21/BO
     Route: 048
     Dates: start: 20180911

REACTIONS (3)
  - Jugular vein thrombosis [Unknown]
  - Tremor [Unknown]
  - Dysarthria [Unknown]

NARRATIVE: CASE EVENT DATE: 20231228
